FAERS Safety Report 9738427 (Version 1)
Quarter: 2013Q4

REPORT INFORMATION
  Report Type: Report from Study
  Country: US (occurrence: US)
  Receive Date: 20131208
  Receipt Date: 20131208
  Transmission Date: 20140711
  Serious: Yes (Other)
  Sender: FDA-Public Use
  Company Number: US-ROCHE-1312928

PATIENT
  Sex: Male

DRUGS (7)
  1. XOLAIR [Suspect]
     Indication: ASTHMA
     Route: 065
  2. PREDNISONE [Concomitant]
     Dosage: X 7 DAYS
     Route: 065
  3. ALLEGRA [Concomitant]
  4. FLONASE [Concomitant]
  5. ALBUTEROL SULFATE [Concomitant]
     Dosage: 90MCG/ACUTUATION  USE AS NEEDED
     Route: 055
  6. SINGULAR [Concomitant]
     Dosage: AT BEDTIME
     Route: 065
  7. ASTELIN [Concomitant]

REACTIONS (15)
  - Asthma [Unknown]
  - Asthma [Unknown]
  - Hypersensitivity [Unknown]
  - Sinusitis [Recovering/Resolving]
  - Chest discomfort [Unknown]
  - Nasal mucosal discolouration [Unknown]
  - Obstructive airways disorder [Unknown]
  - Conjunctivitis allergic [Unknown]
  - Rhinitis allergic [Unknown]
  - Sinus congestion [Unknown]
  - Upper-airway cough syndrome [Unknown]
  - Oropharyngeal pain [Recovering/Resolving]
  - Nasal congestion [Unknown]
  - Nasal turbinate abnormality [Unknown]
  - Nasal septum deviation [Unknown]
